FAERS Safety Report 4981953-X (Version None)
Quarter: 2006Q2

REPORT INFORMATION
  Report Type: 
  Country: None (occurrence: None)
  Receive Date: 20060425
  Receipt Date: 20060317
  Transmission Date: 20061013
  Serious: Yes (Hospitalization)
  Sender: FDA-Public Use
  Company Number: US-MERCK-0603USA03216

PATIENT
  Age: 71 Year
  Sex: Female
  Weight: 70 kg

DRUGS (10)
  1. ALBUTEROL SULFATE AUTOHALER [Concomitant]
     Route: 065
  2. PRILOSEC [Concomitant]
     Route: 048
  3. XANAX [Concomitant]
     Indication: ANXIETY
     Route: 065
     Dates: start: 19960101
  4. ASPIRIN [Concomitant]
     Indication: PROPHYLAXIS
     Route: 065
     Dates: start: 19800101
  5. MOTRIN [Concomitant]
     Indication: PAIN
     Route: 065
  6. VICODIN [Concomitant]
     Indication: PAIN
     Route: 065
     Dates: start: 19980101, end: 20010101
  7. VIOXX [Suspect]
     Indication: ARTHRITIS
     Route: 048
     Dates: start: 19991227, end: 20010522
  8. PROZAC [Concomitant]
     Indication: DEPRESSION
     Route: 065
     Dates: start: 19991001
  9. HUMULIN [Concomitant]
     Indication: DIABETES MELLITUS
     Route: 065
  10. CECLOR [Concomitant]
     Route: 065

REACTIONS (18)
  - AMNESIA [None]
  - ARTHROPATHY [None]
  - CARPAL TUNNEL SYNDROME [None]
  - CERVICAL MYELOPATHY [None]
  - CORONARY ARTERY DISEASE [None]
  - DIZZINESS [None]
  - ESSENTIAL TREMOR [None]
  - FATIGUE [None]
  - GINGIVITIS [None]
  - HALLUCINATION, VISUAL [None]
  - HYPERTENSION [None]
  - MYOCARDIAL INFARCTION [None]
  - PNEUMONIA [None]
  - RETINAL DISORDER [None]
  - ROTATOR CUFF SYNDROME [None]
  - SOFT TISSUE INJURY [None]
  - SPINAL DISORDER [None]
  - UPPER GASTROINTESTINAL HAEMORRHAGE [None]
